FAERS Safety Report 8590366-3 (Version None)
Quarter: 2012Q3

REPORT INFORMATION
  Report Type: 
  Country: None (occurrence: None)
  Receive Date: 20120813
  Receipt Date: 20120808
  Transmission Date: 20120928
  Serious: Yes (Other)
  Sender: FDA-Public Use
  Company Number: US-PFIZER INC-2012194293

PATIENT
  Age: 54 Year
  Sex: Female
  Weight: 68.027 kg

DRUGS (2)
  1. NEURONTIN [Suspect]
     Indication: NEURALGIA
     Dosage: 300 MG, 3X/DAY
     Route: 048
     Dates: start: 20020101
  2. ASPIRIN [Suspect]
     Dosage: UNK

REACTIONS (4)
  - GASTRIC DISORDER [None]
  - THROAT LESION [None]
  - GENERAL PHYSICAL HEALTH DETERIORATION [None]
  - GASTROINTESTINAL DISORDER [None]
